FAERS Safety Report 24989638 (Version 2)
Quarter: 2025Q2

REPORT INFORMATION
  Report Type: Spontaneous
  Country: NO (occurrence: NO)
  Receive Date: 20250220
  Receipt Date: 20250402
  Transmission Date: 20250716
  Serious: Yes (Other)
  Sender: SANDOZ
  Company Number: NO-GRUNENTHAL-2025-102348

PATIENT

DRUGS (15)
  1. AMLODIPINE [Suspect]
     Active Substance: AMLODIPINE BESYLATE
     Indication: Arthralgia
     Route: 065
     Dates: start: 20151020, end: 20240601
  2. ARCOXIA [Suspect]
     Active Substance: ETORICOXIB
     Indication: Arthralgia
     Dosage: 60 MG, QD
     Route: 065
     Dates: start: 20151020, end: 20240601
  3. ARCOXIA [Suspect]
     Active Substance: ETORICOXIB
     Route: 065
     Dates: start: 202305
  4. DICLOFENAC SODIUM [Suspect]
     Active Substance: DICLOFENAC SODIUM
     Indication: Arthralgia
     Route: 065
     Dates: start: 20151020, end: 20240601
  5. TRAMADOL HYDROCHLORIDE [Suspect]
     Active Substance: TRAMADOL HYDROCHLORIDE
     Indication: Arthralgia
     Route: 065
     Dates: start: 20151020, end: 20240601
  6. OXYCONTIN [Suspect]
     Active Substance: OXYCODONE HYDROCHLORIDE
     Indication: Arthralgia
     Route: 065
     Dates: start: 20151020, end: 20240601
  7. ACETAMINOPHEN [Suspect]
     Active Substance: ACETAMINOPHEN
     Indication: Arthralgia
     Route: 065
     Dates: start: 20151020, end: 20240601
  8. TRAMADOL HYDROCHLORIDE [Suspect]
     Active Substance: TRAMADOL HYDROCHLORIDE
     Indication: Arthralgia
     Route: 065
     Dates: start: 20151020, end: 20240601
  9. TRAMADOL HYDROCHLORIDE [Suspect]
     Active Substance: TRAMADOL HYDROCHLORIDE
     Indication: Arthralgia
     Route: 065
     Dates: start: 20151020, end: 20240601
  10. VOLTAREN [Suspect]
     Active Substance: DICLOFENAC SODIUM
     Indication: Arthralgia
     Route: 065
     Dates: start: 20151020, end: 20240601
  11. VIMOVO [Suspect]
     Active Substance: ESOMEPRAZOLE MAGNESIUM\NAPROXEN
     Indication: Arthralgia
     Route: 065
     Dates: start: 20151020, end: 20240601
  12. CANDESARTAN [Concomitant]
     Active Substance: CANDESARTAN
     Indication: Hypertension
     Route: 065
     Dates: start: 2022
  13. NEXIUM [Concomitant]
     Active Substance: ESOMEPRAZOLE MAGNESIUM
     Indication: Product used for unknown indication
     Route: 065
     Dates: start: 20151020, end: 20240601
  14. OZEMPIC [Concomitant]
     Active Substance: SEMAGLUTIDE
     Indication: Overweight
     Route: 065
     Dates: start: 20151020, end: 20240601
  15. WEGOVY [Concomitant]
     Active Substance: SEMAGLUTIDE
     Indication: Weight decreased
     Route: 065
     Dates: start: 2024

REACTIONS (2)
  - Renal failure [Unknown]
  - Renal cancer [Unknown]

NARRATIVE: CASE EVENT DATE: 20230809
